FAERS Safety Report 9812030 (Version 1)
Quarter: 2014Q1

REPORT INFORMATION
  Report Type: Spontaneous
  Country: US (occurrence: US)
  Receive Date: 20140110
  Receipt Date: 20140110
  Transmission Date: 20141002
  Serious: Yes (Hospitalization)
  Sender: FDA-Public Use
  Company Number: US-SA-2013SA101211

PATIENT
  Age: 75 Year
  Sex: Male
  Weight: 95.7 kg

DRUGS (17)
  1. PLAVIX [Suspect]
     Indication: ANTICOAGULANT THERAPY
     Route: 048
     Dates: start: 20130727, end: 20130804
  2. PLAVIX [Suspect]
     Indication: ANTICOAGULANT THERAPY
     Route: 048
     Dates: start: 20130807
  3. INVESTIGATIONAL DRUG [Suspect]
     Indication: COLITIS ULCERATIVE
     Route: 048
  4. FLUOXETINE [Concomitant]
     Indication: DEPRESSION
     Dates: start: 2011
  5. WARFARIN [Concomitant]
     Indication: DEEP VEIN THROMBOSIS
     Dates: start: 2008
  6. VITAMIN C [Concomitant]
     Indication: PROPHYLAXIS
     Dates: start: 2005
  7. SIMVASTATIN [Concomitant]
     Indication: HYPERLIPIDAEMIA
     Route: 048
     Dates: start: 2008
  8. ASPIRIN [Concomitant]
     Indication: PROPHYLAXIS
     Route: 048
     Dates: start: 1993
  9. PAPAIN [Concomitant]
     Indication: PROPHYLAXIS
     Dates: start: 2005
  10. OMEPRAZOLE [Concomitant]
     Indication: GASTROOESOPHAGEAL REFLUX DISEASE
     Route: 048
     Dates: start: 20110509
  11. ASACOL [Concomitant]
     Indication: COLITIS ULCERATIVE
     Route: 048
     Dates: start: 20050831
  12. FISH OIL [Concomitant]
     Indication: PROPHYLAXIS
     Route: 048
     Dates: start: 20031125
  13. GAMMA GLOBULIN [Concomitant]
     Indication: NEUROPATHY PERIPHERAL
     Route: 042
     Dates: start: 20080115
  14. ALL OTHER THERAPEUTIC PRODUCTS [Concomitant]
     Indication: DIARRHOEA
     Dates: start: 2005
  15. VITAMIN B12 [Concomitant]
     Indication: HYPOVITAMINOSIS
     Route: 048
     Dates: start: 20121211
  16. SYMBICORT [Concomitant]
     Indication: SEASONAL ALLERGY
     Route: 055
     Dates: start: 2010
  17. SPIRIVA [Concomitant]
     Indication: SEASONAL ALLERGY
     Route: 048
     Dates: start: 2010

REACTIONS (1)
  - Gastrointestinal haemorrhage [Recovered/Resolved]
